FAERS Safety Report 4675082-2 (Version None)
Quarter: 2005Q2

REPORT INFORMATION
  Report Type: 
  Country: None (occurrence: None)
  Receive Date: 20050525
  Receipt Date: 20050509
  Transmission Date: 20051028
  Serious: Yes (Hospitalization)
  Sender: FDA-Public Use
  Company Number: 11082

PATIENT
  Age: 78 Year
  Sex: Female

DRUGS (2)
  1. LEUCOVORIN CALCIUM [Suspect]
     Indication: BREAST CANCER
     Dosage: 30 MG, PO
     Route: 048
  2. FTORAFUR [Suspect]
     Indication: BREAST CANCER
     Dosage: 300 MG/M2, PO
     Route: 048

REACTIONS (2)
  - DEHYDRATION [None]
  - DIARRHOEA [None]
